FAERS Safety Report 14999655 (Version 1)
Quarter: 2018Q2

REPORT INFORMATION
  Report Type: Spontaneous
  Country: US (occurrence: US)
  Receive Date: 20180522
  Receipt Date: 20180522
  Transmission Date: 20180711
  Serious: Yes (Other)
  Sender: FDA-Public Use
  Company Number: None

PATIENT
  Age: 13 Year
  Sex: Female
  Weight: 69.75 kg

DRUGS (3)
  1. QUILLICHEW ER [Concomitant]
     Active Substance: METHYLPHENIDATE HYDROCHLORIDE
  2. EUCRISA [Suspect]
     Active Substance: CRISABOROLE
     Indication: ECZEMA
     Route: 061
     Dates: start: 20180518, end: 20180520
  3. FOLIC ACID. [Concomitant]
     Active Substance: FOLIC ACID

REACTIONS (9)
  - Dark circles under eyes [None]
  - Loss of personal independence in daily activities [None]
  - Skin erosion [None]
  - Eye pain [None]
  - Application site pain [None]
  - Eye swelling [None]
  - Application site burn [None]
  - Application site erythema [None]
  - Application site exfoliation [None]

NARRATIVE: CASE EVENT DATE: 20180520
